FAERS Safety Report 9913316 (Version 1)
Quarter: 2014Q1

REPORT INFORMATION
  Report Type: Report from Study
  Country: ES (occurrence: ES)
  Receive Date: 20140220
  Receipt Date: 20140220
  Transmission Date: 20141002
  Serious: Yes (Hospitalization)
  Sender: FDA-Public Use
  Company Number: ES-SA-2014SA020316

PATIENT
  Age: 63 Year
  Sex: Female

DRUGS (11)
  1. SEGURIL [Suspect]
     Indication: HEPATIC CIRRHOSIS
     Route: 048
     Dates: start: 201203, end: 20130420
  2. ALDACTONE [Interacting]
     Indication: HEPATIC CIRRHOSIS
     Route: 048
     Dates: start: 201203, end: 20130420
  3. OMEPRAZOLE [Concomitant]
     Indication: PROPHYLAXIS
     Route: 048
     Dates: start: 200610
  4. LACTITOL [Concomitant]
     Indication: HEPATIC CIRRHOSIS
     Route: 048
     Dates: start: 201203, end: 20130420
  5. PROPRANOLOL [Concomitant]
     Indication: PORTAL HYPERTENSION
     Route: 048
     Dates: start: 201204
  6. AMLODIPINE [Concomitant]
     Indication: HYPERTENSION
     Route: 048
     Dates: start: 201207, end: 20130420
  7. CYCLOSPORINE [Concomitant]
  8. FOLIC ACID [Concomitant]
  9. FEMARA [Concomitant]
  10. ALL OTHER THERAPEUTIC PRODUCTS [Concomitant]
  11. ALL OTHER THERAPEUTIC PRODUCTS [Concomitant]

REACTIONS (2)
  - Cardiomyopathy [Recovered/Resolved]
  - Hepatic encephalopathy [Recovered/Resolved]
